FAERS Safety Report 17404599 (Version 2)
Quarter: 2020Q1

REPORT INFORMATION
  Report Type: Spontaneous
  Country: US (occurrence: US)
  Receive Date: 20200211
  Receipt Date: 20200305
  Transmission Date: 20200409
  Serious: No
  Sender: FDA-Public Use
  Company Number: US-VIFOR (INTERNATIONAL) INC.-VIT-2020-00929

PATIENT
  Sex: Male

DRUGS (1)
  1. VELTASSA [Suspect]
     Active Substance: PATIROMER
     Indication: HYPERKALAEMIA
     Dosage: PACKET 1/3 CUP OF WATER ADDED
     Route: 048
     Dates: start: 20190627

REACTIONS (5)
  - Gout [Not Recovered/Not Resolved]
  - Product dose omission [Unknown]
  - Blood uric acid increased [Not Recovered/Not Resolved]
  - Hypertension [Unknown]
  - Dizziness [Unknown]
